FAERS Safety Report 9173942 (Version 1)
Quarter: 2013Q1

REPORT INFORMATION
  Report Type: Spontaneous
  Country: PK (occurrence: None)
  Receive Date: 20130315
  Receipt Date: 20130315
  Transmission Date: 20140127
  Serious: Yes (Disabling)
  Sender: FDA-Public Use
  Company Number: 2013P1003279

PATIENT
  Age: 4 Year
  Sex: Male

DRUGS (1)
  1. ZINACEF [Suspect]
     Indication: OROPHARYNGEAL PAIN
     Route: 042

REACTIONS (2)
  - Muscle spasms [None]
  - Eye movement disorder [None]
